FAERS Safety Report 6220217-3 (Version None)
Quarter: 2009Q2

REPORT INFORMATION
  Report Type: 
  Country: None (occurrence: None)
  Receive Date: 20090609
  Receipt Date: 20090526
  Transmission Date: 20091009
  Serious: Yes (Other)
  Sender: FDA-Public Use
  Company Number: FR-ELI_LILLY_AND_COMPANY-FR200903004329

PATIENT
  Age: 52 Year
  Sex: Female
  Weight: 50 kg

DRUGS (13)
  1. CYMBALTA [Suspect]
     Indication: DEPRESSION
     Dosage: 60 MG, 2/D
     Route: 048
     Dates: start: 20081101
  2. CYMBALTA [Suspect]
     Dosage: 60 MG, DAILY (1/D)
     Route: 048
     Dates: start: 20090101
  3. CYMBALTA [Suspect]
     Dosage: 60 MG, 2/D
     Route: 048
     Dates: start: 20090201
  4. DEPAKOTE [Concomitant]
     Indication: DEPRESSION
     Dosage: 500 MG, 2/D
     Route: 048
     Dates: start: 20071101
  5. ZOLPIDEM TARTRATE [Concomitant]
     Dosage: 1 D/F, UNK
     Route: 048
  6. AMLODIPINE [Concomitant]
     Indication: HYPERTENSION
     Dosage: 5 MG, DAILY (1/D)
     Route: 048
     Dates: end: 20090301
  7. ATACAND [Concomitant]
  8. PRAVASTATIN [Concomitant]
     Indication: HYPERCHOLESTEROLAEMIA
     Dosage: 20 MG, DAILY (1/D)
     Route: 048
  9. SERETIDE [Concomitant]
     Indication: ASTHMA
     Dosage: 500 MG, DAILY (1/D)
     Route: 048
  10. XALATAN [Concomitant]
     Indication: INTRAOCULAR PRESSURE TEST ABNORMAL
     Route: 047
  11. INIPOMP [Concomitant]
     Indication: GASTRITIS
     Dosage: 20 MG, DAILY (1/D)
     Route: 048
     Dates: start: 19890101
  12. TARDYFERON [Concomitant]
     Indication: IRON DEFICIENCY
     Dosage: 80 MG, 2/D
  13. URISPAS [Concomitant]
     Indication: STRESS URINARY INCONTINENCE
     Dosage: 2 D/F, DAILY (1/D)
     Route: 048
     Dates: start: 20060101

REACTIONS (4)
  - ANGINA PECTORIS [None]
  - BLOOD PRESSURE DIASTOLIC INCREASED [None]
  - SINUS TACHYCARDIA [None]
  - THROMBOCYTHAEMIA [None]
